FAERS Safety Report 14699207 (Version 1)
Quarter: 2018Q1

REPORT INFORMATION
  Report Type: Spontaneous
  Country: HU (occurrence: HU)
  Receive Date: 20180330
  Receipt Date: 20180330
  Transmission Date: 20180509
  Serious: Yes (Hospitalization, Other)
  Sender: FDA-Public Use
  Company Number: HU-MYLANLABS-2018M1018380

PATIENT
  Age: 84 Year
  Sex: Female

DRUGS (1)
  1. PROPAFENONE. [Suspect]
     Active Substance: PROPAFENONE
     Indication: SUPRAVENTRICULAR TACHYARRHYTHMIA
     Dosage: 450 MG, QD
     Route: 065

REACTIONS (4)
  - Toxicity to various agents [Recovered/Resolved]
  - Electrocardiogram QRS complex prolonged [Recovered/Resolved]
  - Drug interaction [Unknown]
  - Food interaction [Unknown]
